FAERS Safety Report 5626242-5 (Version None)
Quarter: 2008Q1

REPORT INFORMATION
  Report Type: 
  Country: None (occurrence: None)
  Receive Date: 20080214
  Receipt Date: 20080207
  Transmission Date: 20080703
  Serious: Yes (Hospitalization)
  Sender: FDA-Public Use
  Company Number: B0507933A

PATIENT
  Age: 46 Year
  Sex: Female

DRUGS (1)
  1. AUGMENTIN '125' [Suspect]
     Indication: PHARYNGITIS
     Dosage: 2G PER DAY
     Route: 048
     Dates: start: 20080128, end: 20080129

REACTIONS (1)
  - TOXIC SKIN ERUPTION [None]
